FAERS Safety Report 14958933 (Version 1)
Quarter: 2018Q2

REPORT INFORMATION
  Report Type: Spontaneous
  Country: FR (occurrence: FR)
  Receive Date: 20180531
  Receipt Date: 20180531
  Transmission Date: 20180711
  Serious: Yes (Life-Threatening, Hospitalization)
  Sender: FDA-Public Use
  Company Number: FR-TEVA-2018-FR-899165

PATIENT
  Age: 17 Year
  Sex: Female
  Weight: 59 kg

DRUGS (2)
  1. PARACETAMOL [Concomitant]
     Active Substance: ACETAMINOPHEN
     Indication: INFLUENZA LIKE ILLNESS
     Route: 048
     Dates: start: 20180104, end: 20180106
  2. IBUPROFENE [Suspect]
     Active Substance: IBUPROFEN
     Indication: INFLUENZA LIKE ILLNESS
     Route: 048
     Dates: start: 20180104, end: 20180106

REACTIONS (1)
  - Mediastinal abscess [Recovered/Resolved]

NARRATIVE: CASE EVENT DATE: 201801
